FAERS Safety Report 8383644 (Version 2)
Quarter: 2014Q4

REPORT INFORMATION
  Report Type: Spontaneous
  Country: DE (occurrence: DE)
  Receive Date: 20120201
  Receipt Date: 20141202
  Transmission Date: 20150529
  Serious: Yes (Other)
  Sender: FDA-Public Use
  Company Number: PHHY2012DE006750

PATIENT
  Age: 28 Year
  Sex: Female

DRUGS (4)
  1. METHYLERGOMETRINE [Suspect]
     Active Substance: METHYLERGONOVINE MALEATE
     Indication: UTERINE ATONY
     Route: 065
  2. SULPROSTONE [Concomitant]
     Active Substance: SULPROSTONE
     Indication: PRODUCT USED FOR UNKNOWN INDICATION
     Route: 065
  3. OXYTOCIN. [Suspect]
     Active Substance: OXYTOCIN
     Indication: UTERINE ATONY
     Route: 065
  4. MISOPROSTOL. [Concomitant]
     Active Substance: MISOPROSTOL
     Indication: PRODUCT USED FOR UNKNOWN INDICATION
     Route: 065

REACTIONS (11)
  - Visual field defect [Unknown]
  - Thrombocytopenia [Unknown]
  - Fibrinolysis increased [Unknown]
  - Epistaxis [Unknown]
  - Azotaemia [Unknown]
  - Coagulopathy [Unknown]
  - Haemorrhagic diathesis [Unknown]
  - Neurological symptom [Unknown]
  - Drug ineffective [Unknown]
  - Disseminated intravascular coagulation [Unknown]
  - Subcutaneous haematoma [Unknown]
